FAERS Safety Report 20426935 (Version 1)
Quarter: 2022Q1

REPORT INFORMATION
  Report Type: Report from Study
  Country: US (occurrence: US)
  Receive Date: 20220204
  Receipt Date: 20220204
  Transmission Date: 20220423
  Serious: No
  Sender: FDA-Public Use
  Company Number: US-EXELIXIS-CABO-21042961

PATIENT
  Age: 56 Year
  Sex: Male

DRUGS (1)
  1. CABOMETYX [Suspect]
     Active Substance: CABOZANTINIB S-MALATE
     Indication: Metastases to bone
     Dosage: 40 MG, QD
     Route: 048
     Dates: start: 202107

REACTIONS (22)
  - Hypogeusia [Unknown]
  - Skin exfoliation [Unknown]
  - Erythema [Unknown]
  - Ear pruritus [Unknown]
  - Peripheral swelling [Unknown]
  - Oral pain [Unknown]
  - Rash pruritic [Recovering/Resolving]
  - Pain [Unknown]
  - Abdominal pain upper [Unknown]
  - Constipation [Recovering/Resolving]
  - Blood pressure increased [Unknown]
  - Dry skin [Unknown]
  - Diarrhoea [Unknown]
  - Fatigue [Unknown]
  - Decreased appetite [Unknown]
  - Muscle spasms [Unknown]
  - Nausea [Unknown]
  - Pain in extremity [Unknown]
  - Hepatic enzyme increased [Unknown]
  - Palmar-plantar erythrodysaesthesia syndrome [Unknown]
  - Stomatitis [Unknown]
  - Off label use [Unknown]

NARRATIVE: CASE EVENT DATE: 20210728
